FAERS Safety Report 22393916 (Version 1)
Quarter: 2023Q2

REPORT INFORMATION
  Report Type: Other
  Country: IN (occurrence: None)
  Receive Date: 20230601
  Receipt Date: 20230601
  Transmission Date: 20230722
  Serious: Yes (Other)
  Sender: FDA-Public Use
  Company Number: IN-ROCHE-3360335

PATIENT
  Age: 63 Year
  Sex: Male

DRUGS (20)
  1. TOCILIZUMAB [Suspect]
     Active Substance: TOCILIZUMAB
     Indication: COVID-19
     Route: 065
  2. GANCICLOVIR [Suspect]
     Active Substance: GANCICLOVIR
     Indication: Cytomegalovirus infection reactivation
     Route: 042
  3. REMDESIVIR [Concomitant]
     Active Substance: REMDESIVIR
     Indication: Cytomegalovirus infection reactivation
     Dosage: FOR 10 DAYS
     Route: 042
  4. AZITHROMYCIN [Concomitant]
     Active Substance: AZITHROMYCIN
  5. CETIRIZINE [Concomitant]
     Active Substance: CETIRIZINE HYDROCHLORIDE
  6. ACETAMINOPHEN [Concomitant]
     Active Substance: ACETAMINOPHEN
  7. ENOXAPARIN [Concomitant]
     Active Substance: ENOXAPARIN
     Route: 058
  8. CEFOPERAZONE\SULBACTAM [Concomitant]
     Active Substance: CEFOPERAZONE\SULBACTAM
  9. CEFOPERAZONE\SULBACTAM [Concomitant]
     Active Substance: CEFOPERAZONE\SULBACTAM
  10. CLARITHROMYCIN [Concomitant]
     Active Substance: CLARITHROMYCIN
  11. DALTEPARIN [Concomitant]
     Active Substance: DALTEPARIN
     Route: 058
  12. VORICONAZOLE [Concomitant]
     Active Substance: VORICONAZOLE
     Route: 042
  13. HYDROCORTISONE [Concomitant]
     Active Substance: HYDROCORTISONE
  14. MEROPENEM [Concomitant]
     Active Substance: MEROPENEM
  15. TEICOPLANIN [Concomitant]
     Active Substance: TEICOPLANIN
  16. COLISTIN [Concomitant]
     Active Substance: COLISTIN
  17. METHYLPREDNISOLONE [Concomitant]
     Active Substance: METHYLPREDNISOLONE
     Dosage: FOR 5DAYS CONTINUE TO ONCE DAILY.
  18. VALGANCICLOVIR [Concomitant]
     Active Substance: VALGANCICLOVIR
     Route: 048
  19. LEVOFLOXACIN [Concomitant]
     Active Substance: LEVOFLOXACIN
     Dosage: FOR 5 DAYS
     Route: 048
  20. PREDNISOLONE [Concomitant]
     Active Substance: PREDNISOLONE
     Dosage: AT 10 A.M. FOR 5 DAYS, THEN 2.5 MG ONCE DAILY FOR 5 DAYS, AND THEN 2.5 MG EVERY ALTERNATE DAY FOR A

REACTIONS (2)
  - Pneumonia klebsiella [Unknown]
  - Off label use [Unknown]
